FAERS Safety Report 9314195 (Version 3)
Quarter: 2013Q3

REPORT INFORMATION
  Report Type: Spontaneous
  Country: CH (occurrence: None)
  Receive Date: 20130522
  Receipt Date: 20130801
  Transmission Date: 20140515
  Serious: Yes (Hospitalization, Other)
  Sender: FDA-Public Use
  Company Number: ADR-2013-00856

PATIENT
  Age: 14 Year
  Sex: Male

DRUGS (1)
  1. BACLOFEN [Suspect]
     Indication: MUSCLE SPASTICITY
     Dosage: 220-300MCG/DAY

REACTIONS (8)
  - Hypoxic-ischaemic encephalopathy [None]
  - Hiatus hernia [None]
  - Pallor [None]
  - Vomiting [None]
  - Drooling [None]
  - Gastrooesophageal reflux disease [None]
  - General physical health deterioration [None]
  - No therapeutic response [None]
